FAERS Safety Report 18500446 (Version 3)
Quarter: 2021Q1

REPORT INFORMATION
  Report Type: Other
  Country: CA (occurrence: CA)
  Receive Date: 20201113
  Receipt Date: 20210330
  Transmission Date: 20210419
  Serious: Yes (Hospitalization)
  Sender: FDA-Public Use
  Company Number: CA-CELLTRION INC.-2020CA030962

PATIENT

DRUGS (13)
  1. ERGOCALCIFEROL. [Concomitant]
     Active Substance: ERGOCALCIFEROL
  2. TRANDATE [Concomitant]
     Active Substance: LABETALOL HYDROCHLORIDE
  3. AZATHIOPRINE. [Concomitant]
     Active Substance: AZATHIOPRINE
  4. RITUXIMAB (UNKNOWN) [Suspect]
     Active Substance: RITUXIMAB
     Dosage: 500 MG, 1 EVERY 15 DAYS
     Route: 042
  5. METHYLPREDNISOLONE SODIUM SUCCINATE. [Concomitant]
     Active Substance: METHYLPREDNISOLONE SODIUM SUCCINATE
     Indication: PREMEDICATION
     Dosage: 100 MG
     Route: 042
  6. CALCIUM [Concomitant]
     Active Substance: CALCIUM
  7. TYLENOL [Concomitant]
     Active Substance: ACETAMINOPHEN
     Indication: PREMEDICATION
     Dosage: 650 MG
     Route: 042
  8. BENADRYL [Concomitant]
     Active Substance: DIPHENHYDRAMINE HYDROCHLORIDE
     Indication: PREMEDICATION
     Dosage: 50 MILLIGRAM
     Route: 048
  9. COLCHICINE. [Concomitant]
     Active Substance: COLCHICINE
  10. DESOXIMETASONE. [Concomitant]
     Active Substance: DESOXIMETASONE
  11. PANTOLOC [PANTOPRAZOLE] [Concomitant]
     Active Substance: PANTOPRAZOLE SODIUM
  12. RITUXIMAB (UNKNOWN) [Suspect]
     Active Substance: RITUXIMAB
     Indication: VASCULITIS
     Dosage: UNK
     Route: 042
  13. RITUXIMAB (UNKNOWN) [Suspect]
     Active Substance: RITUXIMAB
     Dosage: 1000 MG, 1 EVERY 15 DAYS
     Route: 042

REACTIONS (9)
  - Blood pressure diastolic abnormal [Unknown]
  - Sinus disorder [Unknown]
  - Blood pressure fluctuation [Unknown]
  - Body temperature decreased [Unknown]
  - Chest pain [Unknown]
  - Pericarditis [Unknown]
  - Blood pressure systolic increased [Unknown]
  - Off label use [Unknown]
  - Intentional product misuse [Unknown]
